FAERS Safety Report 11553421 (Version 8)
Quarter: 2016Q2

REPORT INFORMATION
  Report Type: Spontaneous
  Country: CH (occurrence: CH)
  Receive Date: 20150925
  Receipt Date: 20160502
  Transmission Date: 20160815
  Serious: Yes (Death, Hospitalization, Other)
  Sender: FDA-Public Use
  Company Number: CH-ELI_LILLY_AND_COMPANY-CH201509005247

PATIENT
  Age: 58 Year
  Sex: Female
  Weight: 60 kg

DRUGS (8)
  1. CISPLATIN. [Concomitant]
     Active Substance: CISPLATIN
     Indication: NON-SMALL CELL LUNG CANCER
  2. IRESSA [Concomitant]
     Active Substance: GEFITINIB
     Dosage: UNK, UNKNOWN
     Route: 065
  3. TARCEVA [Concomitant]
     Active Substance: ERLOTINIB HYDROCHLORIDE
     Dosage: UNK, UNKNOWN
     Route: 065
  4. ALIMTA [Suspect]
     Active Substance: PEMETREXED DISODIUM
     Indication: NON-SMALL CELL LUNG CANCER STAGE IV
     Dosage: 500 MG/M2, UNK
     Route: 042
     Dates: start: 20141124, end: 20150803
  5. ALIMTA [Suspect]
     Active Substance: PEMETREXED DISODIUM
     Indication: NON-SMALL CELL LUNG CANCER
     Dosage: 400 MG/M2, CYCLICAL
     Route: 042
     Dates: start: 20140807, end: 20141008
  6. TARGIN [Concomitant]
     Active Substance: NALOXONE HYDROCHLORIDE\OXYCODONE HYDROCHLORIDE
     Dosage: 10/5 MG, BID
     Route: 048
     Dates: start: 20150803
  7. PRADIF [Concomitant]
     Active Substance: TAMSULOSIN HYDROCHLORIDE
     Dosage: 0.4 MG, QD
     Route: 048
  8. FRAGMIN [Concomitant]
     Active Substance: DALTEPARIN SODIUM
     Dosage: 12500 IU, UNKNOWN
     Route: 058
     Dates: start: 20150713

REACTIONS (25)
  - Thrombotic thrombocytopenic purpura [Unknown]
  - Vitamin K deficiency [Unknown]
  - Multiple organ dysfunction syndrome [Fatal]
  - Ascites [Unknown]
  - Paraneoplastic syndrome [Unknown]
  - Cholecystitis infective [Unknown]
  - Pleural effusion [Unknown]
  - Thrombotic microangiopathy [Unknown]
  - Hypoventilation [Unknown]
  - Toxicity to various agents [Unknown]
  - Respiratory tract infection [Unknown]
  - Malignant neoplasm progression [Unknown]
  - Urinary tract obstruction [Unknown]
  - Pulmonary arterial hypertension [Unknown]
  - Coagulopathy [Fatal]
  - Septic shock [Fatal]
  - Hepatitis [Unknown]
  - Disseminated intravascular coagulation [Unknown]
  - Staphylococcal sepsis [Unknown]
  - Abdominal infection [Unknown]
  - Vena cava embolism [Unknown]
  - Cholangitis [Unknown]
  - Haemolytic uraemic syndrome [Unknown]
  - Bicytopenia [Unknown]
  - Device related sepsis [Unknown]

NARRATIVE: CASE EVENT DATE: 20150821
